FAERS Safety Report 8036378-X (Version None)
Quarter: 2012Q1

REPORT INFORMATION
  Report Type: 
  Country: None (occurrence: None)
  Receive Date: 20120111
  Receipt Date: 20120109
  Transmission Date: 20120608
  Serious: Yes (Death, Other)
  Sender: FDA-Public Use
  Company Number: PHHY2011AU110408

PATIENT
  Sex: Male
  Weight: 85 kg

DRUGS (5)
  1. AFINITOR [Suspect]
     Indication: RENAL CELL CARCINOMA
     Dosage: 10 MG, DAILY
     Route: 048
     Dates: start: 20101021, end: 20101110
  2. FOSAMAX [Concomitant]
     Indication: HYPERTENSION
     Dosage: 20 MG, DAILY
     Route: 048
  3. LERCANIDIPINE [Concomitant]
     Indication: HYPERTENSION
     Dosage: 20 MG, DAILY
     Route: 048
  4. ATACAND [Concomitant]
     Indication: HYPERTENSION
     Dosage: 16 MG, DAILY
     Route: 048
  5. INDAPAMIDE [Concomitant]
     Indication: HYPERTENSION
     Dosage: 1.5 MG, DAILY
     Route: 048

REACTIONS (8)
  - HYPOXIA [None]
  - NEOPLASM MALIGNANT [None]
  - METASTASES TO BONE [None]
  - POLLAKIURIA [None]
  - TOXICITY TO VARIOUS AGENTS [None]
  - NEOPLASM PROGRESSION [None]
  - EPISTAXIS [None]
  - RASH [None]
